FAERS Safety Report 9288197 (Version 2)
Quarter: 2013Q2

REPORT INFORMATION
  Report Type: Spontaneous
  Country: US (occurrence: US)
  Receive Date: 20130514
  Receipt Date: 20130529
  Transmission Date: 20140414
  Serious: No
  Sender: FDA-Public Use
  Company Number: US-BAYER-2013-059364

PATIENT
  Age: 70 Year
  Sex: Female
  Weight: 75.74 kg

DRUGS (2)
  1. ALEVE CAPLET [Suspect]
     Indication: ANALGESIC THERAPY
     Dosage: 1 DF, EVERY 12 HOURS
     Route: 048
     Dates: start: 201304, end: 201305
  2. HORMONES NOS [Concomitant]

REACTIONS (4)
  - Urticaria [None]
  - Incorrect dose administered [None]
  - Incorrect drug administration duration [None]
  - Pruritus [None]
